FAERS Safety Report 11680888 (Version 2)
Quarter: 2015Q4

REPORT INFORMATION
  Report Type: Spontaneous
  Country: US (occurrence: US)
  Receive Date: 20151027
  Receipt Date: 20151110
  Transmission Date: 20160304
  Serious: No
  Sender: FDA-Public Use
  Company Number: US-ELI_LILLY_AND_COMPANY-US201002006641

PATIENT
  Age: 70 Year
  Sex: Female
  Weight: 82.99 kg

DRUGS (6)
  1. FORTEO [Suspect]
     Active Substance: TERIPARATIDE
     Dosage: 20 UG, QD
  2. COZAAR [Concomitant]
     Active Substance: LOSARTAN POTASSIUM
  3. NARDIL [Concomitant]
     Active Substance: PHENELZINE SULFATE
  4. OMEPRAZOLE. [Concomitant]
     Active Substance: OMEPRAZOLE
  5. BENZONATATE. [Concomitant]
     Active Substance: BENZONATATE
  6. FORTEO [Suspect]
     Active Substance: TERIPARATIDE
     Indication: OSTEOGENESIS IMPERFECTA
     Dosage: 20 UG, DAILY (1/D)
     Dates: start: 200911

REACTIONS (11)
  - Weight increased [Unknown]
  - Fall [Unknown]
  - Hand fracture [Recovering/Resolving]
  - Concussion [Unknown]
  - Dysstasia [Unknown]
  - Hypertension [Unknown]
  - Pain [Recovered/Resolved]
  - Fall [Recovered/Resolved]
  - Ligament sprain [Unknown]
  - Musculoskeletal pain [Recovered/Resolved]
  - Arthralgia [Unknown]

NARRATIVE: CASE EVENT DATE: 201105
